FAERS Safety Report 13630130 (Version 1)
Quarter: 2017Q2

REPORT INFORMATION
  Report Type: Spontaneous
  Country: US (occurrence: US)
  Receive Date: 20170531
  Receipt Date: 20170531
  Transmission Date: 20170830
  Serious: No
  Sender: FDA-Public Use
  Company Number: US-ASTELLAS-1281997

PATIENT
  Sex: Female

DRUGS (1)
  1. TARCEVA [Suspect]
     Active Substance: ERLOTINIB HYDROCHLORIDE
     Indication: LUNG NEOPLASM MALIGNANT
     Dosage: 25 MG X 3 TABLETS PLUS 150 MG X 1 TABLET ONCE A DAY
     Route: 048

REACTIONS (4)
  - Dyspnoea [Unknown]
  - Rash [Unknown]
  - Heart rate irregular [Unknown]
  - Diarrhoea [Unknown]
